FAERS Safety Report 6908778-X (Version None)
Quarter: 2010Q3

REPORT INFORMATION
  Report Type: 
  Country: None (occurrence: None)
  Receive Date: 20100805
  Receipt Date: 20100804
  Transmission Date: 20110219
  Serious: Yes (Other)
  Sender: FDA-Public Use
  Company Number: A0873626A

PATIENT
  Sex: Female

DRUGS (1)
  1. PAXIL [Suspect]
     Indication: POSTPARTUM DEPRESSION
     Dosage: 10MG PER DAY
     Route: 048
     Dates: start: 19980101, end: 20080101

REACTIONS (7)
  - ABORTION SPONTANEOUS [None]
  - AGITATION [None]
  - DRUG INEFFECTIVE [None]
  - EAR DISCOMFORT [None]
  - FEELING HOT [None]
  - INFLUENZA [None]
  - MALAISE [None]
